FAERS Safety Report 22137023 (Version 2)
Quarter: 2023Q1

REPORT INFORMATION
  Report Type: Report from Study
  Country: NO (occurrence: NO)
  Receive Date: 20230324
  Receipt Date: 20230330
  Transmission Date: 20230417
  Serious: Yes (Hospitalization, Other)
  Sender: FDA-Public Use
  Company Number: NO-KARYOPHARM-2023KPT001015

PATIENT
  Age: 77 Year
  Sex: Female

DRUGS (22)
  1. SELINEXOR [Suspect]
     Active Substance: SELINEXOR
     Indication: Product used for unknown indication
     Dosage: 40 MG, DAY 1 TO DAY 8 OF A 28-DAY CYCLE
     Route: 048
     Dates: start: 20230309
  2. LENALIDOMIDE [Suspect]
     Active Substance: LENALIDOMIDE
     Indication: Product used for unknown indication
     Dosage: DAY 1 AND 21 (1 IN 1 D)
     Route: 048
     Dates: start: 20230309
  3. LENALIDOMIDE [Suspect]
     Active Substance: LENALIDOMIDE
     Dosage: 2 IN 1 D
     Dates: start: 20230309
  4. DEXAMETHASONE [Suspect]
     Active Substance: DEXAMETHASONE
     Indication: Product used for unknown indication
     Dosage: DAY 1 AND 3 (2 IN 1 D)
     Route: 048
     Dates: start: 20230309
  5. DEXAMETHASONE [Suspect]
     Active Substance: DEXAMETHASONE
     Dosage: 2 IN 1 D
     Route: 048
     Dates: start: 20230309
  6. CALCIUM CARBONATE\CHOLECALCIFEROL [Concomitant]
     Active Substance: CALCIUM CARBONATE\CHOLECALCIFEROL
     Indication: Prophylaxis
     Dosage: 500 MG-400 IE, 1 IN 1 D
     Dates: start: 20221201
  7. ENALAPRIL [Concomitant]
     Active Substance: ENALAPRIL
     Indication: Hypertension
     Dosage: 1 IN 1 D
     Route: 048
     Dates: start: 20210301
  8. ATORVASTATIN [Concomitant]
     Active Substance: ATORVASTATIN
     Indication: Hypercholesterolaemia
     Dosage: 1 IN 1 D
     Route: 048
     Dates: start: 20210301
  9. ASPIRIN\MAGNESIUM OXIDE [Concomitant]
     Active Substance: ASPIRIN\MAGNESIUM OXIDE
     Indication: Thrombosis prophylaxis
     Dosage: 1 IN 1 D
     Dates: start: 20230309
  10. VALTREX [Concomitant]
     Active Substance: VALACYCLOVIR HYDROCHLORIDE
     Indication: Antiviral prophylaxis
     Dosage: 2 IN 1 D
     Route: 048
     Dates: start: 20230309
  11. VALTREX [Concomitant]
     Active Substance: VALACYCLOVIR HYDROCHLORIDE
     Dosage: 2 IN 1 D
     Route: 048
     Dates: start: 20230309
  12. EMEND [Concomitant]
     Active Substance: APREPITANT
     Indication: Prophylaxis of nausea and vomiting
     Dosage: 1 IN 1 WK
     Route: 048
     Dates: start: 20230309
  13. EMEND [Concomitant]
     Active Substance: APREPITANT
     Dosage: 2 IN 1 WK
     Route: 048
     Dates: start: 20230310
  14. ZOFRAN [Concomitant]
     Active Substance: ONDANSETRON HYDROCHLORIDE
     Indication: Prophylaxis of nausea and vomiting
     Dosage: 4 IN 1 WK
     Route: 048
     Dates: start: 20230309
  15. ZOFRAN [Concomitant]
     Active Substance: ONDANSETRON HYDROCHLORIDE
     Dosage: 2 IN 1 D
     Route: 048
     Dates: start: 20230309
  16. PANTOPRAZOLE SODIUM [Concomitant]
     Active Substance: PANTOPRAZOLE SODIUM
     Indication: Antacid therapy
     Dosage: 2 IN 1 WK
     Route: 048
     Dates: start: 20230309
  17. PANTOPRAZOLE SODIUM [Concomitant]
     Active Substance: PANTOPRAZOLE SODIUM
     Dosage: 2 IN 1 D
     Route: 048
     Dates: start: 20230309
  18. OXYCODONE [Concomitant]
     Active Substance: OXYCODONE
     Indication: Pain
     Dosage: 2 IN 1 D
     Route: 048
  19. OXYCODONE [Concomitant]
     Active Substance: OXYCODONE
     Dosage: UP TO 4 TIMES AS NEEDED (AS REQUIRED)
     Route: 048
  20. MOVICOL [Concomitant]
     Active Substance: POLYETHYLENE GLYCOL 3350\POTASSIUM CHLORIDE\SODIUM BICARBONATE\SODIUM CHLORIDE
     Indication: Constipation prophylaxis
     Dosage: 1 IN 1 D
     Route: 048
  21. SODIUM PICOSULFATE [Concomitant]
     Active Substance: SODIUM PICOSULFATE
     Indication: Constipation prophylaxis
     Dosage: 10-15 DROPS AS NEEDED (AS REQUIRED)
     Route: 048
  22. ACETAMINOPHEN [Concomitant]
     Active Substance: ACETAMINOPHEN
     Indication: Pain
     Dosage: 4 IN 1 D
     Route: 048

REACTIONS (1)
  - Spinal fracture [Recovering/Resolving]

NARRATIVE: CASE EVENT DATE: 20230315
